FAERS Safety Report 13410138 (Version 2)
Quarter: 2025Q3

REPORT INFORMATION
  Report Type: Report from Study
  Country: EU (occurrence: EU)
  Receive Date: 20170406
  Receipt Date: 20250918
  Transmission Date: 20251020
  Serious: Yes (Death, Life-Threatening, Other)
  Sender: AUROBINDO
  Company Number: EU-AUROBINDO-AUR-APL-2017-32150

PATIENT
  Age: 58 Year
  Sex: Male

DRUGS (8)
  1. RIBAVIRIN [Interacting]
     Active Substance: RIBAVIRIN
     Indication: Hepatitis C
     Dosage: 800 MILLIGRAM, ONCE A DAY
     Route: 065
  2. RIBAVIRIN [Interacting]
     Active Substance: RIBAVIRIN
     Indication: Chronic hepatitis C
     Route: 065
  3. SOFOSBUVIR [Interacting]
     Active Substance: SOFOSBUVIR
     Indication: Hepatitis C
     Dosage: 400 MG, UNK
     Route: 065
  4. SOFOSBUVIR [Interacting]
     Active Substance: SOFOSBUVIR
     Indication: Chronic hepatitis C
  5. SIMEPREVIR [Interacting]
     Active Substance: SIMEPREVIR
     Indication: Hepatitis C
     Dosage: 150 MILLIGRAM, ONCE A DAY
     Route: 065
  6. SIMEPREVIR [Interacting]
     Active Substance: SIMEPREVIR
     Indication: Chronic hepatitis C
  7. DARBEPOETIN ALFA [Interacting]
     Active Substance: DARBEPOETIN ALFA
     Indication: Anaemia
     Route: 065
  8. FILGRASTIM [Interacting]
     Active Substance: FILGRASTIM
     Indication: Febrile neutropenia
     Route: 065

REACTIONS (12)
  - Status epilepticus [Fatal]
  - Haemolytic anaemia [Recovered/Resolved]
  - Drug interaction [Unknown]
  - Haematotoxicity [Recovered/Resolved]
  - Agranulocytosis [Recovered/Resolved]
  - Herpes virus infection [Unknown]
  - Febrile neutropenia [Recovered/Resolved]
  - Myelosuppression [Unknown]
  - Pancytopenia [Recovered/Resolved]
  - Anaemia [Recovered/Resolved]
  - Encephalitis viral [Unknown]
  - BK virus infection [Unknown]
